FAERS Safety Report 12335144 (Version 1)
Quarter: 2016Q2

REPORT INFORMATION
  Report Type: Spontaneous
  Country: FR (occurrence: FR)
  Receive Date: 20160504
  Receipt Date: 20160504
  Transmission Date: 20160815
  Serious: Yes (Other)
  Sender: FDA-Public Use
  Company Number: FR-TEVA-654868ISR

PATIENT
  Age: 87 Year
  Sex: Female

DRUGS (2)
  1. MINISINTROM [Concomitant]
     Active Substance: ACENOCOUMAROL
     Dosage: STARTED 2 YEARS EARLIER, 0.5 TO 0.75 DF DAILY
  2. PROPRANOLOL [Suspect]
     Active Substance: PROPRANOLOL\PROPRANOLOL HYDROCHLORIDE
     Indication: TREMOR
     Dosage: 1 DOSAGE FORMS DAILY;
     Dates: start: 201604

REACTIONS (1)
  - International normalised ratio increased [Recovering/Resolving]

NARRATIVE: CASE EVENT DATE: 201604
